FAERS Safety Report 9513788 (Version 2)
Quarter: 2013Q3

REPORT INFORMATION
  Report Type: Spontaneous
  Country: US (occurrence: US)
  Receive Date: 20130910
  Receipt Date: 20130930
  Transmission Date: 20140515
  Serious: Yes (Other)
  Sender: FDA-Public Use
  Company Number: US-GILEAD-2013-0082885

PATIENT
  Sex: Female

DRUGS (17)
  1. CAYSTON [Suspect]
     Indication: CYSTIC FIBROSIS
     Dosage: UNK UNK, TID
     Route: 055
     Dates: start: 20130731, end: 20130816
  2. CAYSTON [Suspect]
     Indication: BRONCHIECTASIS
  3. CAYSTON [Suspect]
     Indication: PSEUDOMONAS INFECTION
  4. ADVAIR [Concomitant]
     Dosage: 500/50
  5. CALCIUM [Concomitant]
     Route: 048
  6. DEXILANT [Concomitant]
  7. GUAIFENESIN [Concomitant]
  8. HYPERSOL B [Concomitant]
     Dosage: 7 %, UNK
  9. MUCINEX [Concomitant]
  10. NASONEX [Concomitant]
  11. SINGULAIR [Concomitant]
  12. SPIRIVA [Concomitant]
  13. VENTOLIN                           /00139501/ [Concomitant]
  14. VIT D [Concomitant]
  15. XOPENEX [Concomitant]
  16. ZITHROMAX [Concomitant]
  17. ZYRTEC [Concomitant]

REACTIONS (11)
  - Oesophageal candidiasis [Recovered/Resolved]
  - Oxygen saturation decreased [Recovering/Resolving]
  - Abasia [Recovering/Resolving]
  - Oropharyngeal candidiasis [Recovered/Resolved]
  - Heart rate increased [Recovering/Resolving]
  - Malaise [Recovering/Resolving]
  - Upper respiratory tract congestion [Recovering/Resolving]
  - Chest discomfort [Recovering/Resolving]
  - Bronchospasm [Recovering/Resolving]
  - Cough [Recovering/Resolving]
  - Dyspnoea [Recovering/Resolving]
